FAERS Safety Report 8354709 (Version 2)
Quarter: 2012Q4

REPORT INFORMATION
  Report Type: 
  Country: US (occurrence: US)
  Receive Date: 20120125
  Receipt Date: 20121120
  Transmission Date: 20130627
  Serious: Yes (Hospitalization)
  Sender: FDA-Public Use
  Company Number: US-US-EMD SERONO, INC.-7012013

PATIENT
  Sex: Female

DRUGS (3)
  1. REBIF [Suspect]
     Indication: MULTIPLE SCLEROSIS
     Route: 058
     Dates: start: 20020701
  2. KEPPRA [Concomitant]
     Indication: CONVULSION
  3. COUMADIN [Concomitant]
     Indication: DEEP VEIN THROMBOSIS

REACTIONS (12)
  - Spinal column injury [Unknown]
  - Upper limb fracture [Unknown]
  - Blood sodium decreased [Unknown]
  - Post procedural complication [Unknown]
  - Thrombosis [Unknown]
  - Pneumonia [Unknown]
  - Coma [Recovered/Resolved]
  - Convulsion [Unknown]
  - Muscular weakness [Unknown]
  - Fall [Unknown]
  - Arthralgia [Unknown]
  - Injection site bruising [Not Recovered/Not Resolved]
